FAERS Safety Report 8431431-0 (Version None)
Quarter: 2012Q2

REPORT INFORMATION
  Report Type: 
  Country: None (occurrence: None)
  Receive Date: 20120607
  Receipt Date: 20120607
  Transmission Date: 20120825
  Serious: No
  Sender: FDA-Public Use
  Company Number: None

PATIENT
  Age: 34 Year
  Sex: Female
  Weight: 48.5349 kg

DRUGS (1)
  1. ELMIRON [Suspect]
     Indication: CYSTITIS INTERSTITIAL
     Dosage: 100 MG 3 X DAY
     Dates: start: 20120511, end: 20120512

REACTIONS (3)
  - ANGER [None]
  - SOCIAL AVOIDANT BEHAVIOUR [None]
  - DEPRESSION [None]
